FAERS Safety Report 22046071 (Version 9)
Quarter: 2023Q4

REPORT INFORMATION
  Report Type: Report from Study
  Country: PK (occurrence: PK)
  Receive Date: 20230228
  Receipt Date: 20231219
  Transmission Date: 20240110
  Serious: Yes (Hospitalization, Other)
  Sender: FDA-Public Use
  Company Number: PK-SA-SAC20230221001579

PATIENT
  Age: 10 Year
  Sex: Female
  Weight: 23.5 kg

DRUGS (2)
  1. OLIPUDASE ALFA [Suspect]
     Active Substance: OLIPUDASE ALFA
     Indication: Niemann-Pick disease
     Dosage: 0.1 MG/KG (SINGLE DOSE), QOW (INFUSED OVER 3 HOURS WITH 150 ML OF SALINE)
     Route: 042
     Dates: start: 20230216
  2. CHOLECALCIFEROL [Concomitant]
     Active Substance: CHOLECALCIFEROL
     Indication: Vitamin supplementation

REACTIONS (19)
  - Gastrointestinal haemorrhage [Recovered/Resolved]
  - Hypophagia [Recovering/Resolving]
  - Dehydration [Recovering/Resolving]
  - Metabolic acidosis [Recovering/Resolving]
  - Ammonia increased [Recovering/Resolving]
  - Blood lactic acid increased [Recovering/Resolving]
  - Faeces discoloured [Recovering/Resolving]
  - Haemoglobin decreased [Not Recovered/Not Resolved]
  - International normalised ratio abnormal [Recovering/Resolving]
  - Liver injury [Recovered/Resolved]
  - Bacterial sepsis [Unknown]
  - Transaminases increased [Recovering/Resolving]
  - Hypotension [Recovering/Resolving]
  - Vomiting [Recovering/Resolving]
  - Pyrexia [Recovered/Resolved]
  - Blood creatinine decreased [Not Recovered/Not Resolved]
  - Heart rate increased [Unknown]
  - Overdose [Unknown]
  - Incorrect dose administered [Unknown]

NARRATIVE: CASE EVENT DATE: 20230101
